FAERS Safety Report 5210987-5 (Version None)
Quarter: 2007Q1

REPORT INFORMATION
  Report Type: 
  Country: None (occurrence: None)
  Receive Date: 20070117
  Receipt Date: 20070105
  Transmission Date: 20070707
  Serious: Yes (Hospitalization)
  Sender: FDA-Public Use
  Company Number: NL-PFIZER INC-2007002498

PATIENT
  Sex: Female

DRUGS (3)
  1. CELECOXIB [Suspect]
     Indication: OVARIAN CANCER
     Route: 048
  2. DOCETAXEL [Suspect]
     Indication: OVARIAN CANCER
     Route: 042
     Dates: start: 20061219
  3. CARBOPLATIN [Suspect]
     Indication: OVARIAN CANCER
     Dosage: TEXT:585 AUC-FREQ:CYCLIC: EVERY 3 WEEKS
     Route: 042

REACTIONS (1)
  - ILEUS [None]
